FAERS Safety Report 6300838-X (Version None)
Quarter: 2009Q3

REPORT INFORMATION
  Report Type: 
  Country: None (occurrence: None)
  Receive Date: 20090807
  Receipt Date: 20090730
  Transmission Date: 20100115
  Serious: Yes (Other)
  Sender: FDA-Public Use
  Company Number: JP-PFIZER INC-2008153950

PATIENT
  Age: 71 Year

DRUGS (2)
  1. SUNITINIB MALATE [Suspect]
     Indication: RENAL CELL CARCINOMA
     Dosage: 50 MG, 1X/DAY
     Route: 048
     Dates: start: 20080905, end: 20081002
  2. FAMOTIDINE [Concomitant]
     Route: 048
     Dates: start: 20080914

REACTIONS (4)
  - GASTRIC CANCER [None]
  - NEOPLASM MALIGNANT [None]
  - PERIODONTITIS [None]
  - PYREXIA [None]
